FAERS Safety Report 5893821-X (Version None)
Quarter: 2008Q3

REPORT INFORMATION
  Report Type: 
  Country: None (occurrence: None)
  Receive Date: 20080923
  Receipt Date: 20080331
  Transmission Date: 20090109
  Serious: No
  Sender: FDA-Public Use
  Company Number: US-ASTRAZENECA-2007UW24892

PATIENT
  Sex: Male

DRUGS (1)
  1. SEROQUEL [Suspect]
     Indication: MENTAL DISORDER
     Dosage: 50-100 MG TID
     Route: 048

REACTIONS (3)
  - MENTAL DISORDER [None]
  - RESTLESSNESS [None]
  - WITHDRAWAL SYNDROME [None]
